FAERS Safety Report 18056103 (Version 2)
Quarter: 2020Q3

REPORT INFORMATION
  Report Type: Spontaneous
  Country: US (occurrence: US)
  Receive Date: 20200722
  Receipt Date: 20200723
  Transmission Date: 20201103
  Serious: Yes (Other)
  Sender: FDA-Public Use
  Company Number: US-JNJFOC-20200722915

PATIENT

DRUGS (2)
  1. INDOMETHACIN                       /00003801/ [Concomitant]
     Active Substance: INDOMETHACIN
     Indication: PROPHYLAXIS
     Dosage: 0.1 MG/KG/DOSE, EVERY 24 H
     Route: 065
  2. PARACETAMOL [Suspect]
     Active Substance: ACETAMINOPHEN
     Indication: PATENT DUCTUS ARTERIOSUS
     Dosage: 15 MG/KG/DOSE
     Route: 048

REACTIONS (6)
  - Product use in unapproved indication [Unknown]
  - Thrombocytopenia [Unknown]
  - Hyponatraemia [Unknown]
  - Therapeutic response unexpected [Unknown]
  - Off label use [Unknown]
  - Adverse event [Unknown]
